FAERS Safety Report 7843121-3 (Version None)
Quarter: 2011Q4

REPORT INFORMATION
  Report Type: 
  Country: None (occurrence: None)
  Receive Date: 20111025
  Receipt Date: 20111020
  Transmission Date: 20120403
  Serious: No
  Sender: FDA-Public Use
  Company Number: US-PFIZER INC-2011253662

PATIENT
  Sex: Female
  Weight: 61.224 kg

DRUGS (5)
  1. LISINOPRIL [Concomitant]
     Indication: BLOOD PRESSURE ABNORMAL
     Dosage: 20 MG, DAILY
  2. IBUPROFEN (ADVIL) [Suspect]
     Indication: DENTAL DISCOMFORT
     Dosage: 200 MG, UNK
     Route: 048
     Dates: start: 20111003, end: 20111003
  3. FOLIC ACID [Concomitant]
     Dosage: UNK, DAILY
  4. CALCIUM WITH VITAMIN D [Concomitant]
     Dosage: UNK, DAILY
  5. GLUCOSAMINE [Concomitant]
     Dosage: UNK

REACTIONS (1)
  - EPISTAXIS [None]
